FAERS Safety Report 18986451 (Version 2)
Quarter: 2021Q1

REPORT INFORMATION
  Report Type: Report from Study
  Country: DE (occurrence: DE)
  Receive Date: 20210309
  Receipt Date: 20210327
  Transmission Date: 20210420
  Serious: Yes (Other)
  Sender: FDA-Public Use
  Company Number: NVSC2021DE051841

PATIENT
  Sex: Female
  Weight: 67 kg

DRUGS (3)
  1. KISQALI [Suspect]
     Active Substance: RIBOCICLIB
     Dosage: 600 MG, QD (SCHEME: 21 DAYS INTAKE, 7 DAYS PAUSED)
     Route: 048
     Dates: start: 20201106
  2. KISQALI [Suspect]
     Active Substance: RIBOCICLIB
     Indication: BREAST CANCER METASTATIC
     Dosage: 600 MG, (SCHEME: 21 DAYS INTAKE, 7 DAYS PAUSED)
     Route: 048
     Dates: start: 20190201, end: 20201022
  3. LETROZOLE ACCORD [Concomitant]
     Active Substance: LETROZOLE
     Indication: BREAST CANCER METASTATIC
     Dosage: 2.5 MG, QD
     Route: 048
     Dates: start: 20190201

REACTIONS (3)
  - Infarction [Recovered/Resolved]
  - Diplopia [Recovered/Resolved]
  - Microangiopathy [Unknown]

NARRATIVE: CASE EVENT DATE: 202101
